FAERS Safety Report 9442387 (Version 1)
Quarter: 2013Q3

REPORT INFORMATION
  Report Type: Spontaneous
  Country: US (occurrence: US)
  Receive Date: 20130806
  Receipt Date: 20130806
  Transmission Date: 20140515
  Serious: No
  Sender: FDA-Public Use
  Company Number: US-GLAXOSMITHKLINE-A1017686A

PATIENT
  Sex: Female

DRUGS (3)
  1. ADVAIR [Suspect]
     Indication: ASTHMA
     Dosage: 1PUFF PER DAY
     Route: 055
     Dates: start: 201104
  2. MEDICATION FOR HIGH BLOOD PRESSURE [Concomitant]
  3. THYROID MEDICATION [Concomitant]

REACTIONS (1)
  - Throat irritation [Recovered/Resolved]
